FAERS Safety Report 4707627-8 (Version None)
Quarter: 2005Q3

REPORT INFORMATION
  Report Type: 
  Country: None (occurrence: None)
  Receive Date: 20050705
  Receipt Date: 20050615
  Transmission Date: 20060218
  Serious: Yes (Other)
  Sender: FDA-Public Use
  Company Number: 2005-BP-10424RO

PATIENT
  Age: 46 Year
  Sex: Female

DRUGS (2)
  1. MIRTAZAPINE [Suspect]
     Indication: DEPRESSION
     Dosage: 30MG/DAY PO
     Route: 048
  2. VENLAFAXINE HCL [Suspect]
     Indication: DEPRESSION
     Dosage: 75MG/D INCREASED Q3D TO 225 MG/D

REACTIONS (8)
  - ANORGASMIA [None]
  - ANXIETY [None]
  - BLOOD PRESSURE INCREASED [None]
  - DRUG INTERACTION [None]
  - INADEQUATE LUBRICATION [None]
  - LIBIDO INCREASED [None]
  - ORGASM ABNORMAL [None]
  - PSYCHOMOTOR HYPERACTIVITY [None]
